FAERS Safety Report 8124392-5 (Version None)
Quarter: 2012Q1

REPORT INFORMATION
  Report Type: 
  Country: None (occurrence: None)
  Receive Date: 20120209
  Receipt Date: 20120201
  Transmission Date: 20120608
  Serious: Yes (Hospitalization)
  Sender: FDA-Public Use
  Company Number: US-BAYER-2011-112927

PATIENT
  Age: 18 Year
  Sex: Female
  Weight: 68.027 kg

DRUGS (6)
  1. MOMETASONE FUROATE [Concomitant]
  2. AMOXICILLIN [Concomitant]
  3. ACETAMINOPHEN [Concomitant]
  4. IBUPROFEN [Concomitant]
  5. YAZ [Suspect]
     Indication: CONTRACEPTION
     Dosage: UNK
     Dates: start: 20080527, end: 20090901
  6. GUAIFENESIN [Concomitant]

REACTIONS (3)
  - GALLBLADDER DISORDER [None]
  - CHOLECYSTITIS ACUTE [None]
  - INJURY [None]
